FAERS Safety Report 4332065-X (Version None)
Quarter: 2004Q2

REPORT INFORMATION
  Report Type: 
  Country: None (occurrence: None)
  Receive Date: 20040401
  Receipt Date: 20040401
  Transmission Date: 20050107
  Serious: Yes (Death)
  Sender: FDA-Public Use
  Company Number: None

PATIENT
  Age: 39 Year
  Sex: Male
  Weight: 41 kg

DRUGS (12)
  1. XIGRIS [Suspect]
     Indication: ORGAN FAILURE
     Dosage: 980 MCG/HR CONTINUOUS IV
     Route: 042
     Dates: start: 20040330, end: 20040330
  2. XIGRIS [Suspect]
     Indication: SEPSIS
     Dosage: 980 MCG/HR CONTINUOUS IV
     Route: 042
     Dates: start: 20040330, end: 20040330
  3. DOPAMINE HCL [Concomitant]
  4. TPN [Concomitant]
  5. FENTANYL CITRATE [Concomitant]
  6. HDROCORTISONE [Concomitant]
  7. IMIPENEM/CILASTIN [Concomitant]
  8. LORAZEPAM [Concomitant]
  9. PANTOPRAZOLE [Concomitant]
  10. VASOPRESSIN [Concomitant]
  11. TOBRAMYCIN [Concomitant]
  12. PROPOFOL [Concomitant]

REACTIONS (1)
  - HAEMOPTYSIS [None]
